FAERS Safety Report 7830858-5 (Version None)
Quarter: 2011Q4

REPORT INFORMATION
  Report Type: 
  Country: None (occurrence: None)
  Receive Date: 20111021
  Receipt Date: 20111017
  Transmission Date: 20120403
  Serious: Yes (Other)
  Sender: FDA-Public Use
  Company Number: GB-PFIZER INC-2011191806

PATIENT
  Age: 28 Year
  Sex: Female
  Weight: 130 kg

DRUGS (5)
  1. OMACOR [Concomitant]
     Indication: LIPIDS ABNORMAL
     Dosage: 1000 MG, 2X/DAY
     Route: 048
     Dates: start: 20091221
  2. FLUTICASONE PROPIONATE [Concomitant]
     Indication: ASTHMA
     Dosage: 2 DF, AT NIGHT
     Route: 055
     Dates: start: 20100126
  3. VENTOLIN [Concomitant]
     Indication: ASTHMA
     Dosage: UNK, AS NEEDED
     Route: 055
     Dates: start: 20100827
  4. LIPITOR [Suspect]
     Indication: TYPE IIA HYPERLIPIDAEMIA
     Dosage: 40 MG, 1X/DAY
     Route: 048
     Dates: start: 20110701, end: 20110703
  5. AMITRIPTYLINE [Concomitant]
     Indication: ANXIETY
     Dosage: 10-60 MG
     Route: 048
     Dates: start: 20090203

REACTIONS (2)
  - PARAESTHESIA [None]
  - FEELING COLD [None]
